FAERS Safety Report 25516246 (Version 1)
Quarter: 2025Q3

REPORT INFORMATION
  Report Type: Spontaneous
  Country: US (occurrence: US)
  Receive Date: 20250704
  Receipt Date: 20250704
  Transmission Date: 20251021
  Serious: No
  Sender: RADIUS PHARM
  Company Number: US-RADIUS HEALTH INC.-2025US001755

PATIENT
  Sex: Female

DRUGS (1)
  1. TYMLOS [Suspect]
     Active Substance: ABALOPARATIDE
     Indication: Product used for unknown indication
     Route: 058

REACTIONS (5)
  - Upper respiratory tract infection [Unknown]
  - Pharyngitis streptococcal [Unknown]
  - Bone pain [Unknown]
  - Intentional dose omission [Unknown]
  - Incorrect product administration duration [Unknown]
